FAERS Safety Report 18386912 (Version 27)
Quarter: 2024Q3

REPORT INFORMATION
  Report Type: Spontaneous
  Country: US (occurrence: US)
  Receive Date: 20201015
  Receipt Date: 20240827
  Transmission Date: 20241017
  Serious: Yes (Other)
  Sender: PFIZER
  Company Number: US-PFIZER INC-2020399106

PATIENT
  Age: 75 Year
  Sex: Female
  Weight: 109 kg

DRUGS (8)
  1. IBRANCE [Suspect]
     Active Substance: PALBOCICLIB
     Indication: Breast cancer metastatic
     Dosage: STARTED TAKING IT ONE PILL A DAY FOR EVERY MONTH
  2. IBRANCE [Suspect]
     Active Substance: PALBOCICLIB
     Dosage: 21 D ON 7D OFF
     Dates: start: 20201012
  3. IBRANCE [Suspect]
     Active Substance: PALBOCICLIB
     Dosage: 1 TABLET BY MOUTH DAILY, FOR 14 DAYS, THEN OFF FOR 14 DAYS
     Route: 048
  4. IBRANCE [Suspect]
     Active Substance: PALBOCICLIB
     Dosage: 1 TABLET BY MOUTH DAILY, FOR 14 DAYS, THEN OFF FOR 14 DAYS/2 WEEKS ON 2 WEEKS OFF
     Route: 048
  5. IBRANCE [Suspect]
     Active Substance: PALBOCICLIB
     Dosage: 1 TAB DAILY 14D ON 14D OFF/TAKE 1 TABLET (100 MG) BY MONTH DAILY ON DAYS 1-14 OF EACH 28-DAY CYCLE
     Route: 048
  6. IBRANCE [Suspect]
     Active Substance: PALBOCICLIB
     Dosage: 100 MG, CYCLIC (ON DAYS 1-14 OF EACH 28-DAY CYCLE)
     Route: 048
  7. FULVESTRANT [Concomitant]
     Active Substance: FULVESTRANT
     Indication: Breast cancer metastatic
     Dosage: UNK
     Dates: start: 202010
  8. LOSARTAN [Concomitant]
     Active Substance: LOSARTAN\LOSARTAN POTASSIUM
     Indication: Blood pressure abnormal
     Dosage: 100 MG

REACTIONS (18)
  - Immunosuppression [Unknown]
  - Off label use [Unknown]
  - Product dispensing issue [Unknown]
  - Product dose omission in error [Unknown]
  - Arthritis [Unknown]
  - Breast pain [Not Recovered/Not Resolved]
  - Breast tenderness [Unknown]
  - Decreased appetite [Not Recovered/Not Resolved]
  - Depressed mood [Unknown]
  - Feeling abnormal [Unknown]
  - Feeling of despair [Unknown]
  - Gait disturbance [Unknown]
  - Nasopharyngitis [Unknown]
  - Nausea [Recovered/Resolved]
  - Urinary tract infection [Unknown]
  - White blood cell count decreased [Unknown]
  - Amnesia [Unknown]
  - Memory impairment [Unknown]

NARRATIVE: CASE EVENT DATE: 20200101
